FAERS Safety Report 8030707-9 (Version None)
Quarter: 2012Q1

REPORT INFORMATION
  Report Type: 
  Country: None (occurrence: None)
  Receive Date: 20120109
  Receipt Date: 20120102
  Transmission Date: 20120608
  Serious: Yes (Other)
  Sender: FDA-Public Use
  Company Number: PHHY2012FR000795

PATIENT
  Sex: Male

DRUGS (1)
  1. ONBREZ [Suspect]
     Dosage: 300 UG, QD
     Dates: start: 20111001

REACTIONS (1)
  - COMA [None]
